FAERS Safety Report 8974577 (Version 3)
Quarter: 2013Q2

REPORT INFORMATION
  Report Type: Report from Study
  Country: DE (occurrence: DE)
  Receive Date: 20121219
  Receipt Date: 20130426
  Transmission Date: 20140414
  Serious: Yes (Death)
  Sender: FDA-Public Use
  Company Number: DE-ABBOTT-12P-062-1024163-00

PATIENT
  Age: 72 Year
  Sex: Male

DRUGS (1)
  1. TRENANTONE [Suspect]
     Indication: PROSTATE CANCER
     Route: 058
     Dates: start: 20120723, end: 20121018

REACTIONS (3)
  - Death [Fatal]
  - Prostate cancer [Fatal]
  - Cardiac failure [Fatal]
